FAERS Safety Report 5864790-3 (Version None)
Quarter: 2008Q3

REPORT INFORMATION
  Report Type: 
  Country: None (occurrence: None)
  Receive Date: 20080829
  Receipt Date: 20080717
  Transmission Date: 20090109
  Serious: No
  Sender: FDA-Public Use
  Company Number: US-ABBOTT-08P-163-0464199-00

PATIENT
  Sex: Female
  Weight: 99.88 kg

DRUGS (7)
  1. SIMCOR [Suspect]
     Indication: CARDIAC DISORDER
     Dosage: 500/20MG AT NIGHT
     Route: 048
     Dates: start: 20080617
  2. CLOPIDOGREL [Concomitant]
     Indication: CORONARY ARTERIAL STENT INSERTION
     Route: 048
     Dates: start: 20080301
  3. ESCITALOPRAM OXALATE [Concomitant]
     Indication: ANXIETY
     Route: 048
     Dates: start: 20080401
  4. ALPRAZOLAM [Concomitant]
     Indication: ANXIETY
     Route: 048
     Dates: start: 20080401
  5. BENADRYL [Concomitant]
     Indication: PRURITUS
     Route: 048
     Dates: start: 20080301
  6. IBUPROFEN [Concomitant]
     Indication: PAIN
     Route: 048
  7. ACETYLSALICYLIC ACID SRT [Concomitant]
     Indication: CARDIAC DISORDER
     Route: 048
     Dates: start: 20080301

REACTIONS (6)
  - ARTHRALGIA [None]
  - HOT FLUSH [None]
  - JOINT SWELLING [None]
  - MUSCULAR WEAKNESS [None]
  - MUSCULOSKELETAL PAIN [None]
  - PAIN IN EXTREMITY [None]
